FAERS Safety Report 7926905-2 (Version None)
Quarter: 2011Q4

REPORT INFORMATION
  Report Type: 
  Country: None (occurrence: None)
  Receive Date: 20111118
  Receipt Date: 20111116
  Transmission Date: 20120403
  Serious: Yes (Other)
  Sender: FDA-Public Use
  Company Number: JP-PFIZER INC-2011213068

PATIENT
  Age: 68 Year
  Sex: Male
  Weight: 58.5 kg

DRUGS (8)
  1. VARENICLINE TARTRATE [Suspect]
     Dosage: 1 MG/DAY
     Route: 048
     Dates: start: 20110827, end: 20110830
  2. WARFARIN [Concomitant]
     Indication: ATRIAL FIBRILLATION
     Dosage: 4 MG, 1X/DAY
     Route: 048
  3. OMEPRAZOLE [Concomitant]
     Dosage: 10 MG, 1X/DAY
     Route: 048
  4. MAGNESIUM OXIDE [Concomitant]
     Indication: CONSTIPATION
     Dosage: 0.5 G, 3X/DAY
     Route: 048
  5. VERAPAMIL HCL [Concomitant]
     Indication: ATRIAL FIBRILLATION
     Dosage: 40 MG, 3X/DAY
     Route: 048
  6. VARENICLINE TARTRATE [Suspect]
     Indication: NICOTINE DEPENDENCE
     Dosage: 0.5 MG/DAY
     Route: 048
     Dates: start: 20110824, end: 20110826
  7. VARENICLINE TARTRATE [Suspect]
     Dosage: 2 MG/DAY
     Route: 048
     Dates: start: 20110831, end: 20110908
  8. AMARYL [Concomitant]
     Indication: DIABETES MELLITUS
     Dosage: 1 MG, 1X/DAY
     Route: 048

REACTIONS (2)
  - DEAFNESS NEUROSENSORY [None]
  - TINNITUS [None]
